FAERS Safety Report 15618462 (Version 1)
Quarter: 2018Q4

REPORT INFORMATION
  Report Type: Spontaneous
  Country: US (occurrence: US)
  Receive Date: 20181113
  Receipt Date: 20181113
  Transmission Date: 20190205
  Serious: Yes (Other)
  Sender: FDA-Public Use
  Company Number: None

PATIENT
  Age: 46 Year
  Sex: Female
  Weight: 68.6 kg

DRUGS (1)
  1. ISOVUE [Suspect]
     Active Substance: IOPAMIDOL
     Indication: COMPUTERISED TOMOGRAM ABDOMEN
     Route: 040
     Dates: start: 20181025, end: 20181025

REACTIONS (1)
  - Vomiting [None]

NARRATIVE: CASE EVENT DATE: 20181025
